FAERS Safety Report 22150135 (Version 1)
Quarter: 2023Q1

REPORT INFORMATION
  Report Type: Spontaneous
  Country: PL (occurrence: PL)
  Receive Date: 20230329
  Receipt Date: 20230329
  Transmission Date: 20230418
  Serious: Yes (Hospitalization, Other)
  Sender: FDA-Public Use
  Company Number: PL-GILEAD-2023-0620631

PATIENT
  Age: 50 Year
  Sex: Female

DRUGS (3)
  1. BIKTARVY [Suspect]
     Active Substance: BICTEGRAVIR SODIUM\EMTRICITABINE\TENOFOVIR ALAFENAMIDE FUMARATE
     Indication: HIV infection
     Dosage: UNK
     Route: 065
     Dates: start: 20220415
  2. BISEPTOL [Concomitant]
     Active Substance: SULFAMETHOXAZOLE\TRIMETHOPRIM
  3. VALHIT [Concomitant]

REACTIONS (7)
  - Muscular weakness [Unknown]
  - Deafness [Unknown]
  - Diplegia [Unknown]
  - Bone lesion [Unknown]
  - Pyrexia [Unknown]
  - Aphasia [Unknown]
  - Drug ineffective [Unknown]
